FAERS Safety Report 21544629 (Version 1)
Quarter: 2022Q4

REPORT INFORMATION
  Report Type: Spontaneous
  Country: US (occurrence: None)
  Receive Date: 20221101
  Receipt Date: 20221101
  Transmission Date: 20230112
  Serious: Yes (Disabling)
  Sender: FDA-Public Use
  Company Number: None

PATIENT
  Age: 61 Year
  Sex: Female
  Weight: 46.35 kg

DRUGS (3)
  1. ALENDRONATE SODIUM [Suspect]
     Active Substance: ALENDRONATE SODIUM
     Indication: Osteoporosis
     Dosage: FREQUENCY : WEEKLY;?
     Route: 048
     Dates: start: 20220828, end: 20220918
  2. Spring Valley Calcium w/vitamin D3 [Concomitant]
  3. Pure Encapsulations O.N.E. multivitamin [Concomitant]

REACTIONS (25)
  - Musculoskeletal pain [None]
  - Asthenia [None]
  - Musculoskeletal stiffness [None]
  - Bladder disorder [None]
  - Alopecia [None]
  - Arthralgia [None]
  - Balance disorder [None]
  - Musculoskeletal stiffness [None]
  - Musculoskeletal discomfort [None]
  - Pain in extremity [None]
  - Pain in extremity [None]
  - Arthralgia [None]
  - Neck pain [None]
  - Headache [None]
  - Polyuria [None]
  - Gastrointestinal examination normal [None]
  - Flatulence [None]
  - Back pain [None]
  - Sacral pain [None]
  - Arthralgia [None]
  - Pain [None]
  - Pain [None]
  - Limb discomfort [None]
  - Hypoaesthesia [None]
  - Condition aggravated [None]

NARRATIVE: CASE EVENT DATE: 20220828
